FAERS Safety Report 7907962-6 (Version None)
Quarter: 2011Q4

REPORT INFORMATION
  Report Type: 
  Country: None (occurrence: None)
  Receive Date: 20111110
  Receipt Date: 20111103
  Transmission Date: 20120403
  Serious: Yes (Other)
  Sender: FDA-Public Use
  Company Number: DE-BMSGILMSD-2011-0044141

PATIENT
  Sex: Male

DRUGS (2)
  1. ATRIPLA [Suspect]
     Indication: HIV INFECTION
     Dosage: 1 DF, QD
     Route: 048
     Dates: start: 20110501
  2. METHADONE HCL [Suspect]
     Indication: DRUG WITHDRAWAL MAINTENANCE THERAPY
     Dosage: 9 ML, UNK
     Route: 048
     Dates: start: 20090101

REACTIONS (3)
  - VIRAL MUTATION IDENTIFIED [None]
  - DRUG LEVEL DECREASED [None]
  - VIRAL LOAD INCREASED [None]
